FAERS Safety Report 6449851-2 (Version None)
Quarter: 2009Q4

REPORT INFORMATION
  Report Type: 
  Country: None (occurrence: None)
  Receive Date: 20091121
  Receipt Date: 20091102
  Transmission Date: 20100525
  Serious: Yes (Hospitalization)
  Sender: FDA-Public Use
  Company Number: DE-SANOFI-AVENTIS-F04200900113

PATIENT
  Age: 74 Year
  Sex: Female

DRUGS (8)
  1. OXALIPLATIN [Suspect]
     Route: 041
     Dates: start: 20090917, end: 20090917
  2. DOCETAXEL [Suspect]
     Route: 041
     Dates: start: 20090917, end: 20090917
  3. FLUOROURACIL [Suspect]
     Route: 041
     Dates: start: 20090917, end: 20090917
  4. FOLINIC ACID [Suspect]
     Route: 041
     Dates: start: 20090917, end: 20090917
  5. DEXAMETHASONE [Concomitant]
     Dosage: UNIT DOSE: 8 MG
     Route: 065
     Dates: start: 20090101
  6. KEVATRIL [Concomitant]
     Dosage: UNIT DOSE: 1 MG
     Route: 065
     Dates: start: 20090101
  7. CREON [Concomitant]
     Route: 048
     Dates: start: 20090101
  8. PANTOZOL [Concomitant]
     Dosage: UNIT DOSE: 45 MG
     Route: 048

REACTIONS (3)
  - CIRCULATORY COLLAPSE [None]
  - DEHYDRATION [None]
  - FEBRILE NEUTROPENIA [None]
